FAERS Safety Report 17298221 (Version 1)
Quarter: 2020Q1

REPORT INFORMATION
  Report Type: Spontaneous
  Country: FR (occurrence: FR)
  Receive Date: 20200121
  Receipt Date: 20200121
  Transmission Date: 20200409
  Serious: Yes (Death, Other)
  Sender: FDA-Public Use
  Company Number: FR-MYLANLABS-2020M1005297

PATIENT
  Age: 63 Year
  Sex: Male

DRUGS (2)
  1. ALIMTA [Suspect]
     Active Substance: PEMETREXED DISODIUM
     Indication: LUNG ADENOCARCINOMA
     Dosage: UNK UNK, CYCLE (1 UNK, CYCLE )
     Route: 042
     Dates: start: 20190917, end: 20190917
  2. CISPLATIN MYLAN [Suspect]
     Active Substance: CISPLATIN
     Indication: LUNG ADENOCARCINOMA
     Dosage: UNK UNK, CYCLE (1 UNK, CYCLE)
     Route: 042
     Dates: start: 20190917, end: 20190917

REACTIONS (3)
  - Bone marrow failure [Fatal]
  - Neutropenic colitis [Not Recovered/Not Resolved]
  - Acute kidney injury [Not Recovered/Not Resolved]

NARRATIVE: CASE EVENT DATE: 20190926
